FAERS Safety Report 4310854-5 (Version None)
Quarter: 2004Q1

REPORT INFORMATION
  Report Type: 
  Country: None (occurrence: None)
  Receive Date: 20040302
  Receipt Date: 20040219
  Transmission Date: 20041129
  Serious: Yes (Other)
  Sender: FDA-Public Use
  Company Number: 2004199918FR

PATIENT
  Sex: Female

DRUGS (1)
  1. TRELSTAR LA 11.25 MG (TRIPTORELIN PAMOATE) POWDER, STERILE, 11.25 MG [Suspect]
     Indication: ENDOMETRIOSIS
     Dosage: 11.25 MG/3 MONTHS, 2ND INJ., INTRAMUSCULAR; SEE IMAGE
     Route: 030

REACTIONS (1)
  - DIPLOPIA [None]
